FAERS Safety Report 10928054 (Version 1)
Quarter: 2015Q1

REPORT INFORMATION
  Report Type: Spontaneous
  Country: US (occurrence: None)
  Receive Date: 20150317
  Receipt Date: 20150317
  Transmission Date: 20150721
  Serious: No
  Sender: FDA-Public Use
  Company Number: None

PATIENT
  Age: 65 Year
  Sex: Male

DRUGS (7)
  1. DEXAMETHASONE. [Concomitant]
     Active Substance: DEXAMETHASONE
  2. MELPHALEN [Concomitant]
  3. DVD (DEXAMETHASONE/VINCRISTINE/DOXIL) [Concomitant]
  4. VELCADE [Suspect]
     Active Substance: BORTEZOMIB
     Indication: PLASMA CELL MYELOMA
     Dosage: 7 WEEKS
     Route: 042
  5. PLASMA PHERESIS [Concomitant]
  6. BONE MARROW TRANSPLANT [Concomitant]
  7. REVLIMID [Concomitant]
     Active Substance: LENALIDOMIDE

REACTIONS (22)
  - Lung operation [None]
  - Dyspepsia [None]
  - Pneumonia [None]
  - Diarrhoea [None]
  - Dysgeusia [None]
  - Hypertension [None]
  - Acidosis [None]
  - Parosmia [None]
  - Hypovitaminosis [None]
  - Pyrexia [None]
  - Fluid retention [None]
  - Decreased appetite [None]
  - Nasopharyngitis [None]
  - Pain [None]
  - Cardiac rehabilitation therapy [None]
  - Infection [None]
  - Nausea [None]
  - Mineral deficiency [None]
  - Renal impairment [None]
  - Red blood cell count decreased [None]
  - Bone loss [None]
  - White blood cell count decreased [None]
